FAERS Safety Report 11042528 (Version 2)
Quarter: 2015Q2

REPORT INFORMATION
  Report Type: Spontaneous
  Country: US (occurrence: US)
  Receive Date: 20150416
  Receipt Date: 20150525
  Transmission Date: 20150821
  Serious: Yes (Hospitalization)
  Sender: FDA-Public Use
  Company Number: US-JNJFOC-20140618595

PATIENT
  Age: 33 Year
  Sex: Male
  Weight: 61.69 kg

DRUGS (5)
  1. ARIPIPRAZOLE. [Concomitant]
     Active Substance: ARIPIPRAZOLE
     Route: 048
  2. HYDROCODONE [Concomitant]
     Active Substance: HYDROCODONE
     Indication: PAIN
     Route: 048
  3. XARELTO [Suspect]
     Active Substance: RIVAROXABAN
     Indication: PULMONARY EMBOLISM
     Route: 048
     Dates: start: 20140620
  4. GUAIFENESIN. [Concomitant]
     Active Substance: GUAIFENESIN
     Route: 048
  5. ZANTAC [Concomitant]
     Active Substance: RANITIDINE HYDROCHLORIDE
     Route: 048

REACTIONS (5)
  - Loss of consciousness [Unknown]
  - Drug dose omission [Unknown]
  - Syncope [Unknown]
  - Tachycardia [Unknown]
  - Fall [Unknown]

NARRATIVE: CASE EVENT DATE: 201406
